FAERS Safety Report 21961265 (Version 1)
Quarter: 2023Q1

REPORT INFORMATION
  Report Type: Spontaneous
  Country: JP (occurrence: JP)
  Receive Date: 20230207
  Receipt Date: 20230207
  Transmission Date: 20230418
  Serious: Yes (Death, Hospitalization)
  Sender: FDA-Public Use
  Company Number: JP-STRIDES ARCOLAB LIMITED-2023SP001680

PATIENT
  Age: 83 Year
  Sex: Male

DRUGS (10)
  1. DEXAMETHASONE [Suspect]
     Active Substance: DEXAMETHASONE
     Indication: Hepatic amyloidosis
     Dosage: UNK
     Route: 065
  2. URSODIOL [Suspect]
     Active Substance: URSODIOL
     Indication: Hepatic amyloidosis
     Dosage: UNK
     Route: 065
  3. URSODIOL [Suspect]
     Active Substance: URSODIOL
     Indication: Supportive care
  4. BORTEZOMIB [Suspect]
     Active Substance: BORTEZOMIB
     Indication: Hepatic amyloidosis
     Dosage: UNK
     Route: 065
  5. CYSTEINE [Suspect]
     Active Substance: CYSTEINE
     Indication: Hepatic amyloidosis
     Dosage: UNK
     Route: 065
  6. CYSTEINE [Suspect]
     Active Substance: CYSTEINE
     Indication: Supportive care
  7. GLYCINE [Suspect]
     Active Substance: GLYCINE
     Indication: Hepatic amyloidosis
     Dosage: UNK
     Route: 065
  8. GLYCINE [Suspect]
     Active Substance: GLYCINE
     Indication: Supportive care
  9. GLYCYRRHIZIN [Suspect]
     Active Substance: GLYCYRRHIZIN
     Indication: Hepatic amyloidosis
     Dosage: UNK
     Route: 065
  10. GLYCYRRHIZIN [Suspect]
     Active Substance: GLYCYRRHIZIN
     Indication: Supportive care

REACTIONS (1)
  - Drug ineffective [Fatal]
